FAERS Safety Report 13859765 (Version 2)
Quarter: 2017Q3

REPORT INFORMATION
  Report Type: Report from Study
  Country: US (occurrence: US)
  Receive Date: 20170811
  Receipt Date: 20170912
  Transmission Date: 20171127
  Serious: Yes (Death, Other)
  Sender: FDA-Public Use
  Company Number: US-PFIZER INC-2017342823

PATIENT
  Age: 39 Year
  Sex: Female

DRUGS (1)
  1. GABAPENTIN. [Suspect]
     Active Substance: GABAPENTIN
     Dosage: UNK

REACTIONS (13)
  - Ventricular arrhythmia [Fatal]
  - Electrocardiogram QT prolonged [Fatal]
  - Rhabdomyolysis [Fatal]
  - Hepatotoxicity [Fatal]
  - Metabolic acidosis [Fatal]
  - Coma [Fatal]
  - Leukocytosis [Fatal]
  - Myocardial ischaemia [Fatal]
  - Acute kidney injury [Fatal]
  - Hypotension [Fatal]
  - Toxicity to various agents [Fatal]
  - Depressed level of consciousness [Fatal]
  - Respiratory depression [Fatal]
